FAERS Safety Report 8286471 (Version 11)
Quarter: 2012Q4

REPORT INFORMATION
  Report Type: 
  Country: US (occurrence: US)
  Receive Date: 20111213
  Receipt Date: 20120828
  Transmission Date: 20130627
  Serious: Yes (Hospitalization, Other)
  Sender: FDA-Public Use
  Company Number: US-009507513-1112USA01227

PATIENT

DRUGS (15)
  1. FOSAMAX [Suspect]
     Indication: OSTEOPENIA
     Dosage: 10 mg, qd
     Route: 048
     Dates: start: 20000707
  2. FOSAMAX [Suspect]
     Indication: OSTEOPOROSIS
     Dosage: 70 mg, QW
     Route: 048
     Dates: start: 20050914, end: 20080101
  3. FOSAMAX [Suspect]
     Indication: OSTEOPENIA
     Dosage: 70 mg, QW
     Route: 048
     Dates: start: 20081110, end: 20100917
  4. FOSAMAX [Suspect]
     Indication: OSTEOPOROSIS
  5. ALENDRONATE SODIUM [Suspect]
     Indication: OSTEOPENIA
     Dosage: 70 mg, QW
     Route: 048
     Dates: start: 20080218, end: 20080816
  6. ALENDRONATE SODIUM [Suspect]
     Indication: OSTEOPOROSIS
  7. CALCIUM (UNSPECIFIED) [Concomitant]
     Dosage: ^600 mg^
     Route: 048
  8. THERAPY UNSPECIFIED [Concomitant]
     Indication: HYPERTENSION
  9. THERAPY UNSPECIFIED [Concomitant]
     Indication: HYPERCHOLESTEROLAEMIA
     Route: 048
  10. MK-9278 [Concomitant]
     Dosage: UNK UNK, qd
     Dates: start: 20000707
  11. TUMS [Concomitant]
     Dosage: 1250 mg, qd
     Dates: start: 20000707
  12. MK-0152 [Concomitant]
     Dosage: 25 mg, qd
     Route: 048
  13. MK-9359 [Concomitant]
     Dosage: 25 mg, qd
  14. PREMARIN [Concomitant]
     Dosage: 0.625 mg, qd
  15. ASPIRIN [Concomitant]
     Dosage: 81 mg, qd

REACTIONS (41)
  - Femur fracture [Unknown]
  - Uterine disorder [Unknown]
  - Memory impairment [Unknown]
  - Syncope [Unknown]
  - Post procedural haemorrhage [Recovered/Resolved]
  - Anaemia postoperative [Recovered/Resolved]
  - Thrombocytopenia [Recovering/Resolving]
  - Sinus arrhythmia [Unknown]
  - Sternal fracture [Unknown]
  - Adverse drug reaction [Unknown]
  - Road traffic accident [Unknown]
  - Bradycardia [Unknown]
  - Hand fracture [Unknown]
  - Osteoarthritis [Unknown]
  - Arthritis [Unknown]
  - Cataract [Unknown]
  - Osteopenia [Unknown]
  - Breast disorder [Unknown]
  - Bone disorder [Unknown]
  - Cyst [Unknown]
  - Cerebral atrophy [Unknown]
  - Cerebral calcification [Unknown]
  - Carotid artery stenosis [Unknown]
  - Trigger finger [Unknown]
  - Fibrocystic breast disease [Unknown]
  - Foot fracture [Recovering/Resolving]
  - Exostosis [Unknown]
  - Foot fracture [Recovered/Resolved]
  - Foot fracture [Unknown]
  - Blood glucose increased [Unknown]
  - Blood calcium increased [Unknown]
  - Blood urea increased [Unknown]
  - Urinary tract infection [Unknown]
  - Hyperlipidaemia [Unknown]
  - Plantar fasciitis [Unknown]
  - Skin ulcer [Unknown]
  - Pain [Unknown]
  - Oedema peripheral [Unknown]
  - Dizziness [Unknown]
  - Arthralgia [Unknown]
  - Arthralgia [Unknown]
